FAERS Safety Report 7677810-0 (Version None)
Quarter: 2011Q3

REPORT INFORMATION
  Report Type: 
  Country: None (occurrence: None)
  Receive Date: 20110811
  Receipt Date: 20110801
  Transmission Date: 20111222
  Serious: Yes (Hospitalization)
  Sender: FDA-Public Use
  Company Number: US-JNJFOC-20100908395

PATIENT
  Sex: Female
  Weight: 23.4 kg

DRUGS (9)
  1. REMICADE [Suspect]
     Dosage: TOTAL OF 3 DOSES
     Route: 042
     Dates: start: 20090822
  2. REMICADE [Suspect]
     Route: 042
     Dates: start: 20090731
  3. REMICADE [Suspect]
     Indication: COLITIS ULCERATIVE
     Dosage: TOTAL OF 3 DOSES
     Route: 042
     Dates: start: 20090822
  4. REMICADE [Suspect]
     Indication: INFLAMMATORY BOWEL DISEASE
     Route: 042
  5. REMICADE [Suspect]
     Route: 042
  6. REMICADE [Suspect]
     Route: 042
     Dates: start: 20090731
  7. REMICADE [Suspect]
     Route: 042
     Dates: start: 20090731
  8. REMICADE [Suspect]
     Indication: COLITIS
     Dosage: TOTAL OF 3 DOSES
     Route: 042
     Dates: start: 20090822
  9. REMICADE [Suspect]
     Route: 042

REACTIONS (2)
  - DEHYDRATION [None]
  - GASTROENTERITIS [None]
